FAERS Safety Report 20235950 (Version 1)
Quarter: 2021Q4

REPORT INFORMATION
  Report Type: Other
  Country: NL (occurrence: NL)
  Receive Date: 20211228
  Receipt Date: 20211228
  Transmission Date: 20220304
  Serious: Yes (Other)
  Sender: FDA-Public Use
  Company Number: NL-TOLMAR, INC.-21NL030858

PATIENT
  Age: 88 Year
  Sex: Male

DRUGS (3)
  1. ELIGARD [Suspect]
     Active Substance: LEUPROLIDE ACETATE
     Indication: Prostate cancer
     Dosage: 45 MILLIGRAM, Q 6 MONTH
     Route: 058
     Dates: start: 20181211
  2. ELIGARD [Suspect]
     Active Substance: LEUPROLIDE ACETATE
     Dosage: 45 MILLIGRAM, Q 6 MONTH
     Route: 058
     Dates: start: 20210414
  3. ELIGARD [Suspect]
     Active Substance: LEUPROLIDE ACETATE
     Dosage: 45 MILLIGRAM, Q 6 MONTH
     Route: 058
     Dates: start: 20211012

REACTIONS (3)
  - Malignant melanoma [Recovering/Resolving]
  - Metastases to bladder [Recovering/Resolving]
  - Asthma [Recovering/Resolving]

NARRATIVE: CASE EVENT DATE: 20210525
